FAERS Safety Report 12958925 (Version 2)
Quarter: 2016Q4

REPORT INFORMATION
  Report Type: Spontaneous
  Country: FR (occurrence: FR)
  Receive Date: 20161121
  Receipt Date: 20161125
  Transmission Date: 20170207
  Serious: Yes (Hospitalization, Other)
  Sender: FDA-Public Use
  Company Number: FR-AMGEN-FRASP2016160979

PATIENT
  Age: 55 Year
  Sex: Male

DRUGS (7)
  1. CLAMOXYL [Concomitant]
     Active Substance: AMOXICILLIN\CLAVULANIC ACID
     Dosage: 1 DF, BID
     Route: 048
     Dates: start: 201607
  2. KYPROLIS [Suspect]
     Active Substance: CARFILZOMIB
     Dosage: 40 MG, UNK
     Route: 042
     Dates: start: 20160830
  3. ZELITREX [Concomitant]
     Active Substance: VALACYCLOVIR HYDROCHLORIDE
     Dosage: 1 DF, BID
     Route: 048
     Dates: start: 201607
  4. BARACLUDE [Concomitant]
     Active Substance: ENTECAVIR
     Dosage: 1 DF, QD
     Route: 048
  5. POMALIDOMIDE [Concomitant]
     Active Substance: POMALIDOMIDE
     Dosage: 4 MG, UNK FROM D1 TO D21
     Route: 048
     Dates: start: 20160726
  6. KYPROLIS [Suspect]
     Active Substance: CARFILZOMIB
     Indication: PLASMA CELL MYELOMA
     Dosage: 60 MG, ON D1, D2,D8, D9,D15 AND D16
     Route: 042
     Dates: start: 20160726
  7. DEXAMETHASONE. [Concomitant]
     Active Substance: DEXAMETHASONE
     Indication: PLASMA CELL MYELOMA
     Dosage: 20 MG, QD
     Route: 042
     Dates: start: 20160726

REACTIONS (8)
  - Proteinuria [Recovered/Resolved]
  - Acute kidney injury [Recovered/Resolved]
  - Haemoptysis [Recovered/Resolved]
  - Pulmonary alveolar haemorrhage [Not Recovered/Not Resolved]
  - Pneumonia [Unknown]
  - Ejection fraction decreased [Not Recovered/Not Resolved]
  - Pyrexia [Recovered/Resolved]
  - Cardiac failure acute [Unknown]

NARRATIVE: CASE EVENT DATE: 2016
